FAERS Safety Report 13541369 (Version 2)
Quarter: 2017Q2

REPORT INFORMATION
  Report Type: Spontaneous
  Country: US (occurrence: US)
  Receive Date: 20170512
  Receipt Date: 20170606
  Transmission Date: 20170830
  Serious: No
  Sender: FDA-Public Use
  Company Number: US-SA-2016SA200429

PATIENT
  Sex: Male

DRUGS (6)
  1. SOLOSTAR [Suspect]
     Active Substance: DEVICE
     Indication: TYPE 2 DIABETES MELLITUS
     Dates: start: 2016
  2. SOLOSTAR [Suspect]
     Active Substance: DEVICE
     Dates: start: 2016
  3. APIDRA SOLOSTAR [Suspect]
     Active Substance: INSULIN GLULISINE
     Dosage: DOSE- 5 U AT BREAKFAST/LUNCH AND 8 U AT NIGHT
     Route: 065
     Dates: start: 2016
  4. TOUJEO [Suspect]
     Active Substance: INSULIN GLARGINE
     Indication: TYPE 2 DIABETES MELLITUS
     Dosage: DOSE:60 UNIT(S)
     Route: 065
     Dates: start: 2016
  5. SOLOSTAR [Suspect]
     Active Substance: DEVICE
     Dates: start: 2016
  6. APIDRA SOLOSTAR [Suspect]
     Active Substance: INSULIN GLULISINE
     Dosage: DOSE- 5 U AT BREAKFAST AND 8 U AT NIGHT
     Route: 065
     Dates: start: 2016

REACTIONS (4)
  - Blood glucose increased [Unknown]
  - Nervousness [Unknown]
  - Wrong drug administered [Unknown]
  - Drug dose omission [Unknown]
